FAERS Safety Report 5398739-7 (Version None)
Quarter: 2007Q3

REPORT INFORMATION
  Report Type: 
  Country: None (occurrence: None)
  Receive Date: 20070725
  Receipt Date: 20070717
  Transmission Date: 20080115
  Serious: Yes (Death, Hospitalization, Other)
  Sender: FDA-Public Use
  Company Number: 2007SP012963

PATIENT
  Age: 64 Year
  Sex: Female
  Weight: 105.2345 kg

DRUGS (8)
  1. PEG-INTRON [Suspect]
     Indication: HEPATIC CIRRHOSIS
     Dates: start: 20070427
  2. PEG-INTRON [Suspect]
     Indication: HEPATITIS C
     Dates: start: 20070427
  3. RIBAVIRIN [Suspect]
     Indication: HEPATIC CIRRHOSIS
     Dosage: PO
     Route: 048
     Dates: start: 20070427
  4. RIBAVIRIN [Suspect]
     Indication: HEPATITIS C
     Dosage: PO
     Route: 048
     Dates: start: 20070427
  5. VERAPAMIL [Concomitant]
  6. GLIPIZIDE [Concomitant]
  7. POTASSIUM CHLORIDE [Concomitant]
  8. EXPERIMENTAL DRUG [Concomitant]

REACTIONS (17)
  - ABDOMINAL PAIN [None]
  - APHASIA [None]
  - BLOOD CREATINE PHOSPHOKINASE INCREASED [None]
  - CELLULITIS [None]
  - CONFUSIONAL STATE [None]
  - DIARRHOEA [None]
  - EPISTAXIS [None]
  - GANGRENE [None]
  - HAEMATEMESIS [None]
  - HEADACHE [None]
  - HEPATIC FAILURE [None]
  - MENTAL STATUS CHANGES [None]
  - MOUTH HAEMORRHAGE [None]
  - NERVOUS SYSTEM DISORDER [None]
  - OEDEMA PERIPHERAL [None]
  - TROPONIN INCREASED [None]
  - UROSEPSIS [None]
